FAERS Safety Report 13664514 (Version 2)
Quarter: 2017Q2

REPORT INFORMATION
  Report Type: Spontaneous
  Country: US (occurrence: US)
  Receive Date: 20170619
  Receipt Date: 20170620
  Transmission Date: 20170830
  Serious: Yes (Hospitalization, Other)
  Sender: FDA-Public Use
  Company Number: US-PFIZER INC-2017265051

PATIENT
  Age: 62 Year
  Sex: Male
  Weight: 102.49 kg

DRUGS (1)
  1. ADVIL [Suspect]
     Active Substance: IBUPROFEN
     Indication: ARTHRITIS
     Dosage: ABOUT 12-16 PER DAY, DEPENDING ON HOW MUCH PAIN HE WAS IN

REACTIONS (4)
  - Infection [Recovering/Resolving]
  - Intentional product use issue [Unknown]
  - Pneumonia [Unknown]
  - Renal disorder [Unknown]

NARRATIVE: CASE EVENT DATE: 201702
